FAERS Safety Report 5802673-5 (Version None)
Quarter: 2008Q3

REPORT INFORMATION
  Report Type: 
  Country: None (occurrence: None)
  Receive Date: 20080702
  Receipt Date: 20080616
  Transmission Date: 20090109
  Serious: Yes (Hospitalization)
  Sender: FDA-Public Use
  Company Number: S08-GER-02211-01

PATIENT
  Age: 39 Year
  Sex: Male

DRUGS (3)
  1. CITALOPRAM HYDROBROMIDE [Suspect]
     Indication: DEPRESSION
     Dosage: 40 MG QD PO
     Route: 048
     Dates: start: 20071116, end: 20071207
  2. CITALOPRAM HYDROBROMIDE [Suspect]
     Indication: DEPRESSION
     Dosage: 20 MG QD PO
     Route: 048
     Dates: end: 20071115
  3. ZYPREXA [Suspect]
     Dosage: 5 MG QD PO
     Route: 048
     Dates: start: 20070830, end: 20071208

REACTIONS (3)
  - APHASIA [None]
  - MYOCLONUS [None]
  - SPEECH DISORDER [None]
